FAERS Safety Report 5205042-4 (Version None)
Quarter: 2007Q1

REPORT INFORMATION
  Report Type: 
  Country: None (occurrence: None)
  Receive Date: 20070110
  Receipt Date: 20061010
  Transmission Date: 20070707
  Serious: No
  Sender: FDA-Public Use
  Company Number: US-BRISTOL-MYERS SQUIBB COMPANY-13536883

PATIENT
  Age: 42 Year
  Sex: Female
  Weight: 100 kg

DRUGS (11)
  1. ABILIFY [Suspect]
     Indication: BIPOLAR DISORDER
  2. ALBUTEROL SULATE [Concomitant]
     Route: 050
  3. ZYRTEC [Concomitant]
  4. SEROQUEL [Concomitant]
  5. LORAZEPAM [Concomitant]
  6. PREDNISONE TAB [Concomitant]
  7. TRAMADOL HCL [Concomitant]
  8. BENZONATATE [Concomitant]
  9. HYDROCHLOROTHIAZIDE [Concomitant]
  10. ADVAIR DISKUS 100/50 [Concomitant]
  11. SPIRIVA [Concomitant]

REACTIONS (2)
  - DEMENTIA [None]
  - DIZZINESS [None]
